FAERS Safety Report 20634928 (Version 1)
Quarter: 2022Q1

REPORT INFORMATION
  Report Type: Spontaneous
  Country: US (occurrence: US)
  Receive Date: 20220325
  Receipt Date: 20220325
  Transmission Date: 20220423
  Serious: No
  Sender: FDA-Public Use
  Company Number: US-TOLMAR, INC.-22US033262

PATIENT
  Age: 34 Year
  Sex: Male

DRUGS (1)
  1. KETOCONAZOLE [Suspect]
     Active Substance: KETOCONAZOLE
     Indication: Alopecia
     Dosage: 1-2 WEEKS, ABOUT 4 TIMES/TWICE WEEKLY
     Route: 003
     Dates: start: 202202, end: 202202

REACTIONS (2)
  - Off label use [Unknown]
  - Scab [Recovered/Resolved]

NARRATIVE: CASE EVENT DATE: 20220201
